FAERS Safety Report 19846727 (Version 2)
Quarter: 2021Q3

REPORT INFORMATION
  Report Type: Spontaneous
  Country: JP (occurrence: JP)
  Receive Date: 20210917
  Receipt Date: 20210929
  Transmission Date: 20211014
  Serious: Yes (Death, Other)
  Sender: FDA-Public Use
  Company Number: JP-GLAXOSMITHKLINE-JP2021JPN197317

PATIENT
  Age: 3 Decade
  Sex: Female

DRUGS (4)
  1. INDINAVIR SULFATE ETHANOLATE [Suspect]
     Active Substance: INDINAVIR SULFATE
     Indication: HIV INFECTION
     Dosage: UNK
     Dates: start: 199704, end: 199707
  2. SAQUINAVIR [Concomitant]
     Active Substance: SAQUINAVIR
     Indication: HIV INFECTION
     Dosage: UNK
     Dates: start: 199708
  3. EPIVIR [Suspect]
     Active Substance: LAMIVUDINE
     Indication: HIV INFECTION
     Dosage: UNK
     Dates: start: 199704
  4. RETROVIR [Suspect]
     Active Substance: ZIDOVUDINE
     Indication: HIV INFECTION
     Dosage: UNK
     Dates: start: 199704

REACTIONS (7)
  - Cervix carcinoma [Unknown]
  - Death [Fatal]
  - Seizure [Unknown]
  - Acquired immunodeficiency syndrome [Unknown]
  - Herpes zoster [Unknown]
  - Hemiplegia [Unknown]
  - Chest pain [Unknown]

NARRATIVE: CASE EVENT DATE: 199706
